FAERS Safety Report 14995753 (Version 2)
Quarter: 2018Q2

REPORT INFORMATION
  Report Type: Spontaneous
  Country: BG (occurrence: BG)
  Receive Date: 20180611
  Receipt Date: 20180621
  Transmission Date: 20180711
  Serious: Yes (Hospitalization)
  Sender: FDA-Public Use
  Company Number: BG-HORIZON-ACT-0176-2018

PATIENT
  Age: 2 Year
  Sex: Male

DRUGS (3)
  1. TRIMETHOPRIM / SULFAMETHOXAZOLE [Concomitant]
  2. IMUKIN [Suspect]
     Active Substance: INTERFERON GAMMA
     Indication: PRODUCT USED FOR UNKNOWN INDICATION
     Dosage: 1.5 ?G TIW
  3. ITRACONAZOLE. [Concomitant]
     Active Substance: ITRACONAZOLE

REACTIONS (2)
  - Drug ineffective [Recovered/Resolved]
  - Drug administration error [Recovered/Resolved]
